FAERS Safety Report 4673221-0 (Version None)
Quarter: 2005Q2

REPORT INFORMATION
  Report Type: 
  Country: None (occurrence: None)
  Receive Date: 20050524
  Receipt Date: 20050524
  Transmission Date: 20051028
  Serious: Yes (Hospitalization)
  Sender: FDA-Public Use
  Company Number: None

PATIENT
  Age: 57 Year
  Sex: Male
  Weight: 99.7913 kg

DRUGS (3)
  1. CRESTOR [Suspect]
     Indication: HYPERLIPIDAEMIA
     Dosage: 10 MG PO DAILY [SEVERAL WEEKS]
     Route: 048
  2. LISINOPRIL [Concomitant]
  3. SYNTHROID [Concomitant]

REACTIONS (1)
  - PANCREATITIS [None]
